FAERS Safety Report 19054369 (Version 1)
Quarter: 2021Q1

REPORT INFORMATION
  Report Type: Spontaneous
  Country: DE (occurrence: DE)
  Receive Date: 20210324
  Receipt Date: 20210324
  Transmission Date: 20210420
  Serious: Yes (Hospitalization)
  Sender: FDA-Public Use
  Company Number: NVSC2021DE057529

PATIENT
  Age: 17 Year
  Sex: Male

DRUGS (3)
  1. ELVANSE [Concomitant]
     Active Substance: LISDEXAMFETAMINE DIMESYLATE
     Indication: ATTENTION DEFICIT HYPERACTIVITY DISORDER
     Dosage: 1 DF, QD (DAILY DOSE: 1 DF DOSAGE FORM EVERY DAYS)
     Route: 048
  2. TOPIRAMATE. [Suspect]
     Active Substance: TOPIRAMATE
     Indication: EPILEPSY
     Dosage: 4 DF, QD (DAILY DOSE: 4 DF DOSAGE FORM EVERY DAYS 2 SEPARATED DOSES)
     Route: 048
  3. LEVETIRACETAM. [Suspect]
     Active Substance: LEVETIRACETAM
     Indication: EPILEPSY
     Dosage: 2 DF, QD (DAILY DOSE: 2 DF DOSAGE FORM EVERY DAYS 2 SEPARATED DOSES)
     Route: 048

REACTIONS (2)
  - Product administration error [Unknown]
  - Seizure [Unknown]

NARRATIVE: CASE EVENT DATE: 20200216
